FAERS Safety Report 11860147 (Version 3)
Quarter: 2017Q2

REPORT INFORMATION
  Report Type: Report from Study
  Country: US (occurrence: US)
  Receive Date: 20151222
  Receipt Date: 20170608
  Transmission Date: 20170829
  Serious: Yes (Death, Hospitalization, Other)
  Sender: FDA-Public Use
  Company Number: PHHO2015US020790

PATIENT
  Age: 60 Year
  Sex: Female
  Weight: 70.5 kg

DRUGS (2)
  1. MEKINIST [Suspect]
     Active Substance: TRAMETINIB DIMETHYL SULFOXIDE
     Indication: PLASMA CELL MYELOMA
     Dosage: 1.5 MG, QD
     Route: 048
     Dates: start: 20150716, end: 20151002
  2. GSK2141795 [Suspect]
     Active Substance: UPROSERTIB
     Indication: PLASMA CELL MYELOMA
     Dosage: 50 MG, QD
     Route: 048
     Dates: start: 20150716, end: 20151002

REACTIONS (2)
  - Sepsis [Fatal]
  - Intestinal perforation [Recovering/Resolving]

NARRATIVE: CASE EVENT DATE: 20151002
